FAERS Safety Report 16594566 (Version 1)
Quarter: 2019Q3

REPORT INFORMATION
  Report Type: Other
  Country: US (occurrence: US)
  Receive Date: 20190718
  Receipt Date: 20190718
  Transmission Date: 20191004
  Serious: No
  Sender: FDA-Public Use
  Company Number: US-SWEDISH ORPHAN BIOVITRUM-2019US0425

PATIENT
  Age: 13 Year
  Sex: Male

DRUGS (13)
  1. KINERET [Suspect]
     Active Substance: ANAKINRA
     Route: 058
     Dates: start: 20190214
  2. ORENCIA [Concomitant]
     Active Substance: ABATACEPT
  3. SOLU-MEDROL [Concomitant]
     Active Substance: METHYLPREDNISOLONE SODIUM SUCCINATE
  4. SCOPOLAMINE PATCH [Concomitant]
     Active Substance: SCOPOLAMINE
  5. COLCHICINE. [Concomitant]
     Active Substance: COLCHICINE
  6. TRAZODONE [Concomitant]
     Active Substance: TRAZODONE HYDROCHLORIDE
  7. OXYCODONE [Concomitant]
     Active Substance: OXYCODONE
  8. TIZANIDINE. [Concomitant]
     Active Substance: TIZANIDINE
  9. LYRICA [Concomitant]
     Active Substance: PREGABALIN
  10. NABUMETONE. [Concomitant]
     Active Substance: NABUMETONE
  11. FOLIC ACID. [Concomitant]
     Active Substance: FOLIC ACID
  12. METHOTREXATE. [Concomitant]
     Active Substance: METHOTREXATE
  13. MELATONIN [Concomitant]
     Active Substance: MELATONIN

REACTIONS (2)
  - Injection site warmth [Unknown]
  - Injection site urticaria [Unknown]

NARRATIVE: CASE EVENT DATE: 201902
